FAERS Safety Report 22170158 (Version 1)
Quarter: 2023Q2

REPORT INFORMATION
  Report Type: Spontaneous
  Country: DE (occurrence: DE)
  Receive Date: 20230404
  Receipt Date: 20230404
  Transmission Date: 20230722
  Serious: Yes (Life-Threatening, Hospitalization)
  Sender: FDA-Public Use
  Company Number: DE-MACLEODS PHARMACEUTICALS US LTD-MAC2023040519

PATIENT

DRUGS (2)
  1. QUETIAPINE [Suspect]
     Active Substance: QUETIAPINE
     Indication: Product used for unknown indication
     Dosage: 3 GRAM
     Route: 065
  2. IMIPRAMINE [Suspect]
     Active Substance: IMIPRAMINE
     Indication: Product used for unknown indication
     Dosage: 2.2 GRAM
     Route: 065

REACTIONS (8)
  - Suicidal ideation [Unknown]
  - Toxicity to various agents [Recovered/Resolved]
  - Torsade de pointes [Recovered/Resolved]
  - Hypokalaemia [Recovered/Resolved]
  - Seizure [Recovered/Resolved]
  - Electrocardiogram QT prolonged [Recovered/Resolved]
  - Bradycardia [Recovered/Resolved]
  - Intentional overdose [Recovered/Resolved]
